FAERS Safety Report 24307322 (Version 2)
Quarter: 2024Q3

REPORT INFORMATION
  Report Type: Report from Study
  Country: US (occurrence: US)
  Receive Date: 20240911
  Receipt Date: 20240912
  Transmission Date: 20241016
  Serious: Yes (Other)
  Sender: EISAI
  Company Number: US-Eisai-EC-2024-173954

PATIENT
  Age: 61 Year
  Sex: Male
  Weight: 106.8 kg

DRUGS (2)
  1. LENVIMA [Suspect]
     Active Substance: LENVATINIB
     Indication: Thyroid cancer
     Dosage: MISSED 2 DOSES
     Route: 048
     Dates: start: 20220305, end: 202405
  2. LENVIMA [Suspect]
     Active Substance: LENVATINIB
     Route: 048
     Dates: start: 202405

REACTIONS (1)
  - Cataract [Recovering/Resolving]
